FAERS Safety Report 9305377 (Version 1)
Quarter: 2013Q2

REPORT INFORMATION
  Report Type: Spontaneous
  Country: CA (occurrence: CA)
  Receive Date: 20130523
  Receipt Date: 20130523
  Transmission Date: 20140414
  Serious: Yes (Death, Other)
  Sender: FDA-Public Use
  Company Number: PHBS1995CA01627

PATIENT
  Age: 21 Year
  Sex: Female

DRUGS (4)
  1. CLOZAPINE [Suspect]
     Dosage: UNK
  2. CHLORPROMAZINE [Concomitant]
     Dosage: UNK UKN, UNK
  3. CLOMIPRAMINE [Concomitant]
     Dosage: UNK UKN, UNK
  4. FLUOXETINE [Concomitant]
     Dosage: UNK UKN, UNK

REACTIONS (4)
  - Completed suicide [Fatal]
  - Toxicity to various agents [Fatal]
  - Overdose [Fatal]
  - Antipsychotic drug level increased [Unknown]
